FAERS Safety Report 8616435-7 (Version None)
Quarter: 2012Q3

REPORT INFORMATION
  Report Type: 
  Country: None (occurrence: None)
  Receive Date: 20120823
  Receipt Date: 20120821
  Transmission Date: 20120928
  Serious: Yes (Other)
  Sender: FDA-Public Use
  Company Number: US-SHIONOGI, INC-2012000176

PATIENT

DRUGS (4)
  1. ULESFIA [Suspect]
     Indication: LICE INFESTATION
     Dosage: 5 %, UNK
     Route: 061
     Dates: start: 20120514, end: 20120514
  2. PERMETHRIN [Concomitant]
     Dosage: UNK
     Dates: start: 20120501
  3. TEA TREE OIL [Concomitant]
     Dosage: UNK
     Route: 061
     Dates: start: 20120501
  4. OLIVE OIL [Concomitant]
     Dosage: UNK

REACTIONS (6)
  - DYSPNOEA [None]
  - COGNITIVE DISORDER [None]
  - DRUG INEFFECTIVE [None]
  - PARAESTHESIA [None]
  - CHEST PAIN [None]
  - PSYCHOMOTOR HYPERACTIVITY [None]
